FAERS Safety Report 24637916 (Version 3)
Quarter: 2025Q2

REPORT INFORMATION
  Report Type: Spontaneous
  Country: DE (occurrence: DE)
  Receive Date: 20241119
  Receipt Date: 20250620
  Transmission Date: 20250716
  Serious: Yes (Other)
  Sender: OTSUKA
  Company Number: DE-OTSUKA-2024_030632

PATIENT

DRUGS (1)
  1. ARIPIPRAZOLE [Suspect]
     Active Substance: ARIPIPRAZOLE
     Indication: Product used for unknown indication
     Route: 065

REACTIONS (23)
  - Arrhythmia [Unknown]
  - Suicidal behaviour [Unknown]
  - Hair growth abnormal [Unknown]
  - Visual impairment [Unknown]
  - Euphoric mood [Unknown]
  - Mood swings [Unknown]
  - Blepharospasm [Unknown]
  - Affect lability [Unknown]
  - Apathy [Unknown]
  - Hostility [Unknown]
  - Anger [Unknown]
  - Thirst [Unknown]
  - Tic [Unknown]
  - Disturbance in attention [Unknown]
  - Anxiety [Unknown]
  - Impulsive behaviour [Unknown]
  - Rash [Unknown]
  - Tachycardia [Unknown]
  - Dizziness [Unknown]
  - Headache [Unknown]
  - Constipation [Unknown]
  - Alopecia [Unknown]
  - Tremor [Unknown]
